FAERS Safety Report 10183506 (Version 1)
Quarter: 2014Q2

REPORT INFORMATION
  Report Type: Spontaneous
  Country: US (occurrence: US)
  Receive Date: 20140520
  Receipt Date: 20140520
  Transmission Date: 20141212
  Serious: Yes (Hospitalization)
  Sender: FDA-Public Use
  Company Number: US-BAYER-2014-071013

PATIENT
  Age: 0 Day
  Sex: Female
  Weight: 2.72 kg

DRUGS (1)
  1. MIRENA [Suspect]
     Route: 064

REACTIONS (3)
  - Neonatal respiratory distress syndrome [Recovered/Resolved]
  - Sepsis neonatal [Recovered/Resolved]
  - Foetal exposure during pregnancy [None]
